FAERS Safety Report 10221032 (Version 1)
Quarter: 2014Q2

REPORT INFORMATION
  Report Type: Spontaneous
  Country: US (occurrence: US)
  Receive Date: 20140606
  Receipt Date: 20140606
  Transmission Date: 20141212
  Serious: No
  Sender: FDA-Public Use
  Company Number: US-ASTRAZENECA-2014SE36930

PATIENT
  Sex: Male

DRUGS (3)
  1. SYMBICORT [Suspect]
     Dosage: 160/4.5 MCG (2 PUFFS BID)
     Route: 055
  2. SYMBICORT [Suspect]
     Dosage: 160/4.5 MCG (3 PUFFS UNKNOWN FREQUENCY)
     Route: 055
  3. ALBUTEROL [Concomitant]

REACTIONS (3)
  - Bipolar disorder [Unknown]
  - Circumstance or information capable of leading to medication error [Unknown]
  - Intentional product misuse [Unknown]
